FAERS Safety Report 9219900 (Version 2)
Quarter: 2013Q2

REPORT INFORMATION
  Report Type: Spontaneous
  Country: US (occurrence: US)
  Receive Date: 20130409
  Receipt Date: 20130412
  Transmission Date: 20140414
  Serious: No
  Sender: FDA-Public Use
  Company Number: PHEH2013US007775

PATIENT
  Age: 67 Year
  Sex: Female

DRUGS (1)
  1. TASIGNA [Suspect]
     Indication: CHRONIC MYELOID LEUKAEMIA
     Dosage: 400 MG, BID
     Route: 048
     Dates: start: 20130326

REACTIONS (6)
  - Somnolence [Unknown]
  - Flushing [Recovered/Resolved]
  - Rash [Recovering/Resolving]
  - Myalgia [Unknown]
  - Fatigue [Recovering/Resolving]
  - Blood bilirubin increased [Unknown]
